FAERS Safety Report 8382671-0 (Version None)
Quarter: 2012Q2

REPORT INFORMATION
  Report Type: 
  Country: None (occurrence: None)
  Receive Date: 20120524
  Receipt Date: 20120521
  Transmission Date: 20120825
  Serious: Yes (Hospitalization)
  Sender: FDA-Public Use
  Company Number: US-AMGEN-USASP2012031851

PATIENT
  Age: 46 Year
  Sex: Female

DRUGS (1)
  1. ENBREL [Suspect]
     Indication: RHEUMATOID ARTHRITIS
     Dosage: 25 MG, 2 TIMES/WK
     Dates: start: 20030101

REACTIONS (13)
  - GAIT DISTURBANCE [None]
  - OEDEMA PERIPHERAL [None]
  - METATARSAL EXCISION [None]
  - INFECTION [None]
  - ARTHRALGIA [None]
  - SWELLING [None]
  - JOINT SWELLING [None]
  - SUPERFICIAL VEIN PROMINENCE [None]
  - PAIN IN EXTREMITY [None]
  - INJECTION SITE PAIN [None]
  - JOINT DESTRUCTION [None]
  - FOOT DEFORMITY [None]
  - BURNING SENSATION [None]
